FAERS Safety Report 5385776-1 (Version None)
Quarter: 2007Q3

REPORT INFORMATION
  Report Type: 
  Country: None (occurrence: None)
  Receive Date: 20070712
  Receipt Date: 20070702
  Transmission Date: 20080115
  Serious: Yes (Other)
  Sender: FDA-Public Use
  Company Number: BR-PFIZER INC-2007055701

PATIENT
  Sex: Female
  Weight: 62 kg

DRUGS (6)
  1. LIPITOR [Suspect]
     Indication: BLOOD CHOLESTEROL
     Dates: start: 20060101, end: 20060101
  2. SELOZOK [Concomitant]
     Route: 048
  3. HIGROTON [Concomitant]
     Indication: BLOOD PRESSURE
     Route: 048
  4. HIGROTON [Concomitant]
     Indication: POLYURIA
  5. ALL OTHER THERAPEUTIC PRODUCTS [Concomitant]
     Indication: HYPERTENSION
     Route: 048
  6. ASPIRIN [Concomitant]
     Indication: PROPHYLAXIS
     Route: 048

REACTIONS (3)
  - ANGIOPLASTY [None]
  - OSTEOARTHRITIS [None]
  - SPINAL DISORDER [None]
